FAERS Safety Report 15752884 (Version 4)
Quarter: 2020Q4

REPORT INFORMATION
  Report Type: Report from Study
  Country: GB (occurrence: GR)
  Receive Date: 20181221
  Receipt Date: 20201125
  Transmission Date: 20210113
  Serious: Yes (Death, Life-Threatening, Hospitalization, Other)
  Sender: FDA-Public Use
  Company Number: GR-AMGEN-GRCSP2016140133

PATIENT
  Age: 13 Year
  Sex: Female
  Weight: 51 kg

DRUGS (6)
  1. DEXAMETHASONE. [Concomitant]
     Active Substance: DEXAMETHASONE
     Indication: AGGRESSION
  2. DEXAMETHASONE. [Concomitant]
     Active Substance: DEXAMETHASONE
     Indication: B PRECURSOR TYPE ACUTE LEUKAEMIA
     Dosage: UNK
  3. DEXAMETHASONE. [Concomitant]
     Active Substance: DEXAMETHASONE
     Indication: MENTAL DISORDER
  4. BLINATUMOMAB [Suspect]
     Active Substance: BLINATUMOMAB
     Dosage: 28 MICROGRAM, QD
     Route: 041
     Dates: start: 20160824, end: 20160913
  5. METHOTREXATE. [Concomitant]
     Active Substance: METHOTREXATE
     Route: 037
  6. BLINATUMOMAB [Suspect]
     Active Substance: BLINATUMOMAB
     Indication: B PRECURSOR TYPE ACUTE LEUKAEMIA
     Dosage: 7 MICROGRAM, QD
     Route: 041
     Dates: start: 20160817, end: 20160823

REACTIONS (10)
  - Progressive multifocal leukoencephalopathy [Not Recovered/Not Resolved]
  - Balance disorder [Unknown]
  - Altered state of consciousness [Unknown]
  - Acute lymphocytic leukaemia recurrent [Fatal]
  - Disorientation [Unknown]
  - Seizure [Unknown]
  - Hyponatraemia [Unknown]
  - Neurotoxicity [Unknown]
  - Speech disorder [Unknown]
  - Confusional state [Unknown]

NARRATIVE: CASE EVENT DATE: 20160922
